FAERS Safety Report 4962838-1 (Version None)
Quarter: 2006Q1

REPORT INFORMATION
  Report Type: 
  Country: None (occurrence: None)
  Receive Date: 20060331
  Receipt Date: 20060328
  Transmission Date: 20060701
  Serious: Yes (Death)
  Sender: FDA-Public Use
  Company Number: 2006S1000057

PATIENT
  Age: 3 Day
  Sex: Male

DRUGS (10)
  1. INOMAX [Suspect]
     Indication: LUNG DISORDER
     Dosage: DOSE, FORM, ROUTE AND FREQENCY 5 PPM; INH_GAS;INH,CONT, INH
     Route: 055
     Dates: start: 20060323, end: 20060328
  2. INOMAX [Suspect]
     Indication: PROPHYLAXIS
     Dosage: DOSE, FORM, ROUTE AND FREQENCY 5 PPM; INH_GAS;INH,CONT, INH
     Route: 055
     Dates: start: 20060323, end: 20060328
  3. DOPAMINE HCL [Concomitant]
  4. DOBUTAMINE (DOBUTAMINE) [Concomitant]
  5. MIDAZOLAM HCL [Concomitant]
  6. AMPICILLIN [Concomitant]
  7. GENTAMICIN [Concomitant]
  8. SURFACTANT [Concomitant]
  9. SODIUM BICARBONATE IN PLASTIC CONTAINER [Concomitant]
  10. INSULIN (INSULIN) [Concomitant]

REACTIONS (6)
  - BRADYCARDIA NEONATAL [None]
  - CARDIAC ARREST NEONATAL [None]
  - INTRAVENTRICULAR HAEMORRHAGE NEONATAL [None]
  - METABOLIC ACIDOSIS [None]
  - NEONATAL DISORDER [None]
  - NEONATAL HYPOTENSION [None]
